FAERS Safety Report 10691457 (Version 2)
Quarter: 2015Q1

REPORT INFORMATION
  Report Type: Spontaneous
  Country: US (occurrence: US)
  Receive Date: 20150105
  Receipt Date: 20150216
  Transmission Date: 20150720
  Serious: Yes (Other)
  Sender: FDA-Public Use
  Company Number: US-BAYER-2015-000921

PATIENT
  Age: 18 Year
  Sex: Female
  Weight: 81.63 kg

DRUGS (1)
  1. MIRENA [Suspect]
     Active Substance: LEVONORGESTREL
     Indication: CONTRACEPTION
     Dosage: 20 MCG/24HR, CONT
     Route: 015
     Dates: start: 20100510, end: 20110602

REACTIONS (11)
  - Device issue [None]
  - Abdominal pain lower [None]
  - Dysmenorrhoea [None]
  - Injury [None]
  - Paraesthesia [None]
  - Device breakage [None]
  - Abdominal pain [None]
  - Complication of device removal [None]
  - Embedded device [None]
  - Menorrhagia [None]
  - Hypoaesthesia [None]

NARRATIVE: CASE EVENT DATE: 2010
